FAERS Safety Report 9924198 (Version 4)
Quarter: 2014Q2

REPORT INFORMATION
  Report Type: Spontaneous
  Country: US (occurrence: US)
  Receive Date: 20140226
  Receipt Date: 20140514
  Transmission Date: 20141212
  Serious: No
  Sender: FDA-Public Use
  Company Number: US-BIOGENIDEC-2014BI016637

PATIENT
  Age: 65 Year
  Sex: Female

DRUGS (3)
  1. AVONEX [Suspect]
     Indication: MULTIPLE SCLEROSIS
     Route: 030
     Dates: start: 201203
  2. AVONEX [Suspect]
     Indication: MULTIPLE SCLEROSIS
     Route: 030
     Dates: start: 20120322, end: 20140218
  3. AVONEX [Suspect]
     Indication: MULTIPLE SCLEROSIS
     Route: 030

REACTIONS (7)
  - Fall [Recovered/Resolved]
  - Tooth avulsion [Recovered/Resolved]
  - Balance disorder [Recovered/Resolved]
  - Adverse event [Recovered/Resolved]
  - Loss of control of legs [Unknown]
  - Influenza like illness [Recovered/Resolved]
  - Paraesthesia [Recovered/Resolved]
